FAERS Safety Report 7247676-1 (Version None)
Quarter: 2011Q1

REPORT INFORMATION
  Report Type: 
  Country: None (occurrence: None)
  Receive Date: 20110127
  Receipt Date: 20110123
  Transmission Date: 20110831
  Serious: Yes (Hospitalization, Other)
  Sender: FDA-Public Use
  Company Number: US-PFIZER INC-2011015782

PATIENT
  Sex: Female
  Weight: 127 kg

DRUGS (5)
  1. PERCOCET [Concomitant]
     Indication: BACK PAIN
     Dosage: 10/325 MG AS NEEDED
     Route: 048
  2. CHANTIX [Suspect]
     Indication: SMOKING CESSATION THERAPY
     Dosage: 0.5 MG, 1X/DAY
     Route: 048
     Dates: start: 20110113, end: 20110120
  3. LISINOPRIL [Concomitant]
     Indication: HYPERTENSION
     Dosage: 20/25 MG DAILY
     Route: 048
  4. AMBIEN [Concomitant]
     Indication: SLEEP DISORDER
     Dosage: 5 MG, 1X/DAY
     Route: 048
  5. XANAX [Suspect]
     Indication: ANXIETY
     Dosage: 1 MG, AS NEEDED
     Route: 048

REACTIONS (11)
  - ANXIETY [None]
  - ASTHENIA [None]
  - HALLUCINATION [None]
  - DIARRHOEA [None]
  - SUICIDAL IDEATION [None]
  - PARANOIA [None]
  - NAUSEA [None]
  - VOMITING [None]
  - WEIGHT DECREASED [None]
  - DEHYDRATION [None]
  - ABDOMINAL PAIN [None]
